FAERS Safety Report 4813813-9 (Version None)
Quarter: 2005Q4

REPORT INFORMATION
  Report Type: 
  Country: None (occurrence: None)
  Receive Date: 20051028
  Receipt Date: 20050324
  Transmission Date: 20060501
  Serious: No
  Sender: FDA-Public Use
  Company Number: US-GLAXOSMITHKLINE-A0551083A

PATIENT
  Age: 27 Year
  Sex: Female
  Weight: 61.8 kg

DRUGS (1)
  1. ADVAIR DISKUS 100/50 [Suspect]
     Indication: SINOBRONCHITIS
     Route: 055

REACTIONS (2)
  - BLOOD PRESSURE INCREASED [None]
  - PALPITATIONS [None]
